FAERS Safety Report 16301966 (Version 3)
Quarter: 2022Q4

REPORT INFORMATION
  Report Type: Report from Study
  Country: CA (occurrence: CA)
  Receive Date: 20190512
  Receipt Date: 20221117
  Transmission Date: 20230113
  Serious: Yes (Hospitalization, Other)
  Sender: FDA-Public Use
  Company Number: PHHY2011CA03040

PATIENT
  Age: 53 Year
  Sex: Female

DRUGS (13)
  1. GLIVEC [Suspect]
     Active Substance: IMATINIB MESYLATE
     Indication: Acute myeloid leukaemia
     Dosage: 600 MG (400 MG IN AFTERNOON AND 200 MG AT NIGHT) QD
     Route: 048
     Dates: start: 20101201
  2. GLIVEC [Suspect]
     Active Substance: IMATINIB MESYLATE
     Indication: Philadelphia positive acute lymphocytic leukaemia
     Dosage: 400 MG, QD
     Route: 048
     Dates: start: 2010, end: 2011
  3. GLIVEC [Suspect]
     Active Substance: IMATINIB MESYLATE
     Dosage: 500 MG, QD
     Route: 048
     Dates: start: 2011
  4. GLIVEC [Suspect]
     Active Substance: IMATINIB MESYLATE
     Dosage: 600 MG, QD
     Route: 048
     Dates: start: 2012
  5. GLIVEC [Suspect]
     Active Substance: IMATINIB MESYLATE
     Dosage: 500 MG, QD
     Route: 048
     Dates: start: 2012
  6. GLIVEC [Suspect]
     Active Substance: IMATINIB MESYLATE
     Dosage: 500 MG, (400 MG IN THE EVENING, 100 MG AT NIGHT)
     Route: 048
     Dates: start: 2012
  7. GLIVEC [Suspect]
     Active Substance: IMATINIB MESYLATE
     Dosage: 500 MG, (400MG WITH ONE MEAL AND 100MG WITH ANOTHER MEAL)
     Route: 048
  8. GLIVEC [Suspect]
     Active Substance: IMATINIB MESYLATE
     Dosage: 500 MG, (400 MG IN THE AFTERNOON, 100 MG AT NIGHT)QD
     Route: 048
  9. GLIVEC [Suspect]
     Active Substance: IMATINIB MESYLATE
     Dosage: 600 MG, QD
     Route: 048
  10. GLIVEC [Suspect]
     Active Substance: IMATINIB MESYLATE
     Dosage: 500 MG, (400 MG IN THE AFTERNOON, 100 MG AT NIGHT)QD
     Route: 048
  11. GLIVEC [Suspect]
     Active Substance: IMATINIB MESYLATE
     Dosage: 400 MG,(400 MG IN AFTERNOON AND 100 MG AT NIGHT)
     Route: 048
  12. MAGNESIUM [Concomitant]
     Active Substance: MAGNESIUM
     Indication: Product used for unknown indication
     Dosage: UNK
     Route: 065
  13. BENADRYL [Concomitant]
     Active Substance: DIPHENHYDRAMINE HYDROCHLORIDE
     Indication: Product used for unknown indication
     Dosage: UNK, PRN
     Route: 065

REACTIONS (33)
  - Vomiting [Unknown]
  - Influenza [Unknown]
  - Bone disorder [Unknown]
  - Chest pain [Not Recovered/Not Resolved]
  - Renal impairment [Unknown]
  - Tooth disorder [Not Recovered/Not Resolved]
  - Feeling abnormal [Unknown]
  - Limb discomfort [Unknown]
  - Oropharyngeal pain [Unknown]
  - Musculoskeletal discomfort [Unknown]
  - Hepatic enzyme increased [Unknown]
  - Liver disorder [Unknown]
  - Pallor [Unknown]
  - Dysgeusia [Unknown]
  - Abdominal pain upper [Unknown]
  - Nausea [Unknown]
  - Gastritis [Unknown]
  - Muscle spasms [Not Recovered/Not Resolved]
  - Ocular hyperaemia [Unknown]
  - Diarrhoea [Unknown]
  - Pain [Not Recovered/Not Resolved]
  - Bone pain [Not Recovered/Not Resolved]
  - Arthralgia [Not Recovered/Not Resolved]
  - Hypersensitivity [Unknown]
  - Rash [Unknown]
  - Pruritus [Not Recovered/Not Resolved]
  - Erythema [Unknown]
  - Musculoskeletal pain [Unknown]
  - Pain in extremity [Unknown]
  - Headache [Unknown]
  - Pyrexia [Unknown]
  - Drug intolerance [Unknown]
  - Product dose omission issue [Unknown]

NARRATIVE: CASE EVENT DATE: 20101231
